FAERS Safety Report 20672657 (Version 1)
Quarter: 2022Q2

REPORT INFORMATION
  Report Type: Spontaneous
  Country: HR (occurrence: None)
  Receive Date: 20220405
  Receipt Date: 20220405
  Transmission Date: 20220721
  Serious: Yes (Other)
  Sender: FDA-Public Use
  Company Number: HR-ROCHE-3066807

PATIENT
  Age: 21 Year
  Sex: Male

DRUGS (3)
  1. RIVOTRIL [Suspect]
     Active Substance: CLONAZEPAM
     Indication: Product used for unknown indication
     Dosage: 15.5 MG, DAILY, 31 TBL OF 0.5 MG
     Route: 048
     Dates: start: 20211220, end: 20211220
  2. NORMABEL [Suspect]
     Active Substance: DIAZEPAM
     Indication: Product used for unknown indication
     Dosage: 40 MG, DAILY,8 TBL OF 5 MG
     Route: 048
     Dates: start: 20211220, end: 20211220
  3. ALCOHOL [Suspect]
     Active Substance: ALCOHOL
     Indication: Product used for unknown indication
     Dosage: UNK,1 BEER
     Route: 048

REACTIONS (4)
  - Somnolence [Unknown]
  - Mydriasis [Unknown]
  - Suicide attempt [Unknown]
  - Intentional overdose [Unknown]

NARRATIVE: CASE EVENT DATE: 20211220
